FAERS Safety Report 8190830-5 (Version None)
Quarter: 2012Q1

REPORT INFORMATION
  Report Type: 
  Country: None (occurrence: None)
  Receive Date: 20120307
  Receipt Date: 20120301
  Transmission Date: 20120608
  Serious: Yes (Hospitalization)
  Sender: FDA-Public Use
  Company Number: US-ALEXION-A201200400

PATIENT
  Sex: Male
  Weight: 92.4 kg

DRUGS (1)
  1. SOLIRIS [Suspect]
     Indication: HAEMOLYTIC URAEMIC SYNDROME
     Dosage: 900 MG, UNK
     Route: 042
     Dates: start: 20120222

REACTIONS (5)
  - HEPATO-LENTICULAR DEGENERATION [None]
  - EPISTAXIS [None]
  - BLOOD CREATININE ABNORMAL [None]
  - MOUTH HAEMORRHAGE [None]
  - GLOMERULAR FILTRATION RATE ABNORMAL [None]
